FAERS Safety Report 8426358-4 (Version None)
Quarter: 2012Q2

REPORT INFORMATION
  Report Type: 
  Country: None (occurrence: None)
  Receive Date: 20120323
  Receipt Date: 20110426
  Transmission Date: 20120825
  Serious: Yes (Hospitalization)
  Sender: FDA-Public Use
  Company Number: 163-21880-11043354

PATIENT
  Age: 62 Year
  Sex: Male
  Weight: 98.8842 kg

DRUGS (10)
  1. REVLIMID [Suspect]
     Indication: MULTIPLE MYELOMA
     Dosage: 25 MG, 21 DAYS, PO
     Route: 048
     Dates: start: 20110301
  2. LOVAZA [Concomitant]
  3. ASCORBIC ACID [Concomitant]
  4. NIACIN [Concomitant]
  5. NIASPAN [Concomitant]
  6. ASPIRIN [Concomitant]
  7. DEXAMETHASONE [Concomitant]
  8. MULTIVITAMIN [Concomitant]
  9. CALCIUM CARBONATE [Concomitant]
  10. VITAMIN D [Concomitant]

REACTIONS (1)
  - THROMBOSIS [None]
